FAERS Safety Report 22016494 (Version 2)
Quarter: 2023Q1

REPORT INFORMATION
  Report Type: Report from Study
  Country: AT (occurrence: AT)
  Receive Date: 20230221
  Receipt Date: 20230302
  Transmission Date: 20230418
  Serious: Yes (Death, Hospitalization, Other)
  Sender: FDA-Public Use
  Company Number: AT-TAKEDA-2023TUS017798

PATIENT
  Age: 61 Year
  Sex: Female

DRUGS (2)
  1. MOBOCERTINIB [Suspect]
     Active Substance: MOBOCERTINIB
     Indication: Non-small cell lung cancer
     Dosage: 160 MILLIGRAM, QD
     Route: 065
     Dates: start: 20220803, end: 20220901
  2. MOBOCERTINIB [Suspect]
     Active Substance: MOBOCERTINIB
     Dosage: 80 MILLIGRAM, QD
     Route: 065
     Dates: start: 20220901, end: 20220913

REACTIONS (5)
  - Non-small cell lung cancer [Fatal]
  - Renal failure [Unknown]
  - Pneumonia [Unknown]
  - Gastrointestinal disorder [Recovered/Resolved]
  - General physical health deterioration [Unknown]

NARRATIVE: CASE EVENT DATE: 20220813
